FAERS Safety Report 4969005-6 (Version None)
Quarter: 2006Q2

REPORT INFORMATION
  Report Type: 
  Country: None (occurrence: None)
  Receive Date: 20060405
  Receipt Date: 20060323
  Transmission Date: 20061013
  Serious: Yes (Hospitalization)
  Sender: FDA-Public Use
  Company Number: 2006-03-2269

PATIENT
  Sex: Female

DRUGS (6)
  1. INTRON A [Suspect]
     Dosage: SEE IMAGE
     Dates: start: 19990101, end: 19990101
  2. INTRON A [Suspect]
     Dosage: SEE IMAGE
     Dates: start: 19990101, end: 20000101
  3. INTRON A [Suspect]
     Dosage: SEE IMAGE
     Dates: start: 20000101, end: 20000101
  4. REBETOL [Suspect]
     Dosage: SEE IMAGE
     Route: 048
     Dates: start: 19990101, end: 19990101
  5. REBETOL [Suspect]
     Dosage: SEE IMAGE
     Route: 048
     Dates: start: 19990101, end: 20000101
  6. REBETOL [Suspect]
     Dosage: SEE IMAGE
     Route: 048
     Dates: start: 20000101, end: 20000101

REACTIONS (5)
  - ANAPHYLACTIC SHOCK [None]
  - CONDITION AGGRAVATED [None]
  - DEPRESSION [None]
  - MANIA [None]
  - THERAPY NON-RESPONDER [None]
